FAERS Safety Report 24856807 (Version 2)
Quarter: 2025Q1

REPORT INFORMATION
  Report Type: Report from Study
  Country: US (occurrence: US)
  Receive Date: 20250117
  Receipt Date: 20250212
  Transmission Date: 20250408
  Serious: Yes (Hospitalization)
  Sender: ALNYLAM PHARMACEUTICALS
  Company Number: US-ALNYLAM PHARMACEUTICALS, INC.-ALN-2025-000313

PATIENT

DRUGS (2)
  1. AMVUTTRA [Suspect]
     Active Substance: VUTRISIRAN
     Indication: Hereditary neuropathic amyloidosis
     Route: 065
     Dates: start: 20240327, end: 20240327
  2. AMVUTTRA [Suspect]
     Active Substance: VUTRISIRAN
     Route: 065
     Dates: start: 20240626, end: 20240626

REACTIONS (2)
  - Hospitalisation [Not Recovered/Not Resolved]
  - Product dose omission issue [Unknown]

NARRATIVE: CASE EVENT DATE: 20250111
